FAERS Safety Report 18921925 (Version 1)
Quarter: 2021Q1

REPORT INFORMATION
  Report Type: Spontaneous
  Country: US (occurrence: US)
  Receive Date: 20210220
  Receipt Date: 20210220
  Transmission Date: 20210420
  Serious: No
  Sender: FDA-Public Use
  Company Number: None

PATIENT
  Age: 65 Year
  Sex: Male
  Weight: 112 kg

DRUGS (2)
  1. DAUNORUBICIN [Suspect]
     Active Substance: DAUNORUBICIN
     Dates: end: 20210122
  2. CYTARABINE. [Suspect]
     Active Substance: CYTARABINE
     Dates: end: 20210126

REACTIONS (7)
  - Hypotension [None]
  - Neutrophil count increased [None]
  - White blood cell count increased [None]
  - Pyrexia [None]
  - Enterococcal infection [None]
  - Atrial fibrillation [None]
  - Dyspnoea [None]

NARRATIVE: CASE EVENT DATE: 20210128
